FAERS Safety Report 25200111 (Version 1)
Quarter: 2025Q2

REPORT INFORMATION
  Report Type: Spontaneous
  Country: US (occurrence: None)
  Receive Date: 20250414
  Receipt Date: 20250414
  Transmission Date: 20250716
  Serious: Yes (Life-Threatening)
  Sender: FDA-CTU
  Company Number: None

PATIENT
  Age: 15 Year
  Sex: Female

DRUGS (2)
  1. AMPICILLIN SODIUM\SULBACTAM SODIUM [Suspect]
     Active Substance: AMPICILLIN SODIUM\SULBACTAM SODIUM
  2. CLINDAMYCIN [Suspect]
     Active Substance: CLINDAMYCIN

REACTIONS (4)
  - Swelling face [None]
  - Rash [None]
  - Vomiting [None]
  - Urticaria [None]

NARRATIVE: CASE EVENT DATE: 20250302
